FAERS Safety Report 8266500-1 (Version None)
Quarter: 2012Q2

REPORT INFORMATION
  Report Type: 
  Country: None (occurrence: None)
  Receive Date: 20120406
  Receipt Date: 20120328
  Transmission Date: 20120825
  Serious: Yes (Other)
  Sender: FDA-Public Use
  Company Number: US-ASTRAZENECA-2012SE11568

PATIENT
  Age: 56 Year
  Sex: Male
  Weight: 88 kg

DRUGS (6)
  1. XANAX [Concomitant]
     Indication: ANXIETY
  2. SEROQUEL [Suspect]
     Indication: DEPRESSION
     Route: 048
  3. GABAPENTIN [Suspect]
     Indication: PAIN
     Route: 065
  4. SEROQUEL [Suspect]
     Dosage: AT NIGHT
     Route: 048
  5. SEROQUEL [Suspect]
     Indication: SLEEP DISORDER
     Route: 048
  6. SEROQUEL [Suspect]
     Dosage: AT NIGHT
     Route: 048

REACTIONS (10)
  - MALAISE [None]
  - ACCIDENT [None]
  - DISABILITY [None]
  - GRAND MAL CONVULSION [None]
  - ADVERSE EVENT [None]
  - INTENTIONAL DRUG MISUSE [None]
  - OFF LABEL USE [None]
  - IRRITABLE BOWEL SYNDROME [None]
  - THORACIC VERTEBRAL FRACTURE [None]
  - PERIORBITAL HAEMATOMA [None]
